FAERS Safety Report 19639103 (Version 2)
Quarter: 2021Q3

REPORT INFORMATION
  Report Type: Spontaneous
  Country: US (occurrence: US)
  Receive Date: 20210729
  Receipt Date: 20210803
  Transmission Date: 20211014
  Serious: No
  Sender: FDA-Public Use
  Company Number: US-SA-2021SA249759

PATIENT
  Age: 55 Year
  Sex: Female

DRUGS (1)
  1. DUPIXENT [Suspect]
     Active Substance: DUPILUMAB
     Indication: DERMATITIS ATOPIC
     Dosage: 300 MG, QOW
     Route: 058
     Dates: start: 202007

REACTIONS (7)
  - Joint swelling [Unknown]
  - Dry skin [Unknown]
  - Increased tendency to bruise [Unknown]
  - Skin laceration [Unknown]
  - Therapeutic response decreased [Unknown]
  - Skin haemorrhage [Unknown]
  - Skin atrophy [Unknown]

NARRATIVE: CASE EVENT DATE: 202107
